FAERS Safety Report 19276421 (Version 5)
Quarter: 2021Q2

REPORT INFORMATION
  Report Type: Spontaneous
  Country: US (occurrence: US)
  Receive Date: 20210520
  Receipt Date: 20210628
  Transmission Date: 20210717
  Serious: Yes (Other)
  Sender: FDA-Public Use
  Company Number: US-BLUEPRINT MEDICINES CORPORATION-SP-US-2021-000689

PATIENT
  Age: 57 Year
  Sex: Male

DRUGS (1)
  1. AYVAKIT [Suspect]
     Active Substance: AVAPRITINIB
     Indication: GASTROINTESTINAL STROMAL TUMOUR
     Route: 048
     Dates: start: 20191015

REACTIONS (24)
  - Sneezing [Unknown]
  - Fall [Unknown]
  - Blister [Unknown]
  - Cough [Unknown]
  - Dry throat [Unknown]
  - Swelling [Unknown]
  - Dyspnoea [Not Recovered/Not Resolved]
  - Abdominal pain upper [Unknown]
  - Skin cancer [Unknown]
  - Back injury [Unknown]
  - Fatigue [Unknown]
  - Hepatic neoplasm [Unknown]
  - Nodule [Not Recovered/Not Resolved]
  - Post procedural discomfort [Unknown]
  - Pleural effusion [Unknown]
  - Insomnia [Unknown]
  - Diarrhoea [Not Recovered/Not Resolved]
  - Drug ineffective [Unknown]
  - Abdominal neoplasm [Unknown]
  - Dry skin [Unknown]
  - Pain [Unknown]
  - Pericardial effusion [Unknown]
  - Procedural haemorrhage [Unknown]
  - Hyperkeratosis [Unknown]

NARRATIVE: CASE EVENT DATE: 202103
